FAERS Safety Report 10532858 (Version 4)
Quarter: 2014Q4

REPORT INFORMATION
  Report Type: Report from Study
  Country: US (occurrence: US)
  Receive Date: 20141022
  Receipt Date: 20141208
  Transmission Date: 20150529
  Serious: Yes (Other)
  Sender: FDA-Public Use
  Company Number: US-AMGEN INC.-USASL2014080357

PATIENT
  Age: 0 Day
  Sex: Male
  Weight: 3.18 kg

DRUGS (5)
  1. PREDNISONE. [Concomitant]
     Active Substance: PREDNISONE
     Dosage: 5 MG AS NEEDED
     Route: 064
  2. TYLENOL [Concomitant]
     Active Substance: ACETAMINOPHEN
     Dosage: 25 MG AS NEEDED
     Route: 064
  3. ENBREL [Suspect]
     Active Substance: ETANERCEPT
     Indication: EXPOSURE DURING PREGNANCY
     Dosage: 50 MG, QWK
     Route: 064
     Dates: start: 20130422, end: 20140101
  4. IBUPROFEN. [Concomitant]
     Active Substance: IBUPROFEN
     Dosage: UNK
     Route: 064
  5. GINGER                             /01646601/ [Concomitant]
     Dosage: AS NEEDED
     Route: 064

REACTIONS (1)
  - Congenital skin dimples [Recovered/Resolved]

NARRATIVE: CASE EVENT DATE: 20140831
